FAERS Safety Report 17453585 (Version 1)
Quarter: 2020Q1

REPORT INFORMATION
  Report Type: Report from Study
  Country: US (occurrence: US)
  Receive Date: 20200224
  Receipt Date: 20200224
  Transmission Date: 20200409
  Serious: No
  Sender: FDA-Public Use
  Company Number: NVSC2020US050276

PATIENT
  Age: 69 Year
  Sex: Male

DRUGS (2)
  1. GLATOPA [Suspect]
     Active Substance: GLATIRAMER ACETATE
     Dosage: UNK
     Route: 065
     Dates: start: 20200217
  2. GLATOPA [Suspect]
     Active Substance: GLATIRAMER ACETATE
     Indication: MULTIPLE SCLEROSIS
     Dosage: 40 MG, QW3
     Route: 058
     Dates: start: 20200202

REACTIONS (3)
  - Flushing [Unknown]
  - Dyspnoea [Unknown]
  - Dizziness [Unknown]

NARRATIVE: CASE EVENT DATE: 20200217
